FAERS Safety Report 4743529-9 (Version None)
Quarter: 2005Q3

REPORT INFORMATION
  Report Type: 
  Country: None (occurrence: None)
  Receive Date: 20050810
  Receipt Date: 20050810
  Transmission Date: 20060218
  Serious: Yes (Death)
  Sender: FDA-Public Use
  Company Number: None

PATIENT
  Sex: Female
  Weight: 76.2043 kg

DRUGS (7)
  1. LEVORA 0.15/30-28 [Suspect]
     Indication: CONTRACEPTION
     Dosage: ONCE DAILY , ORAL
     Route: 048
  2. PAPAYA ENZYME [Concomitant]
  3. MILK THISTLE [Concomitant]
  4. PROBIOTIC ACID OP HILUS [Concomitant]
  5. LECITHIN [Concomitant]
  6. ESTER-C [Concomitant]
  7. COLLOIDAL SILVER [Concomitant]

REACTIONS (2)
  - DEEP VEIN THROMBOSIS [None]
  - PULMONARY EMBOLISM [None]
